FAERS Safety Report 5615213-0 (Version None)
Quarter: 2008Q1

REPORT INFORMATION
  Report Type: 
  Country: None (occurrence: None)
  Receive Date: 20080206
  Receipt Date: 20080125
  Transmission Date: 20080703
  Serious: Yes (Death)
  Sender: FDA-Public Use
  Company Number: GB-AVENTIS-200811154GDDC

PATIENT
  Age: 61 Year

DRUGS (2)
  1. GLYBURIDE [Suspect]
     Route: 048
  2. INSULIN [Suspect]

REACTIONS (1)
  - COMPLETED SUICIDE [None]
